FAERS Safety Report 9405821 (Version 1)
Quarter: 2013Q3

REPORT INFORMATION
  Report Type: Spontaneous
  Country: CA (occurrence: CA)
  Receive Date: 20130717
  Receipt Date: 20130717
  Transmission Date: 20140515
  Serious: Yes (Other)
  Sender: FDA-Public Use
  Company Number: CA-GLAXOSMITHKLINE-A1032227A

PATIENT
  Age: 39 Year
  Sex: Female

DRUGS (2)
  1. WELLBUTRIN XL [Suspect]
     Indication: DEPRESSION
     Dosage: 300MG PER DAY
     Route: 048
     Dates: start: 201211, end: 201302
  2. UNKNOWN [Concomitant]

REACTIONS (3)
  - Systemic lupus erythematosus [Recovered/Resolved]
  - Drug eruption [Recovered/Resolved]
  - Oropharyngeal plaque [Recovered/Resolved]
